FAERS Safety Report 9832507 (Version 1)
Quarter: 2014Q1

REPORT INFORMATION
  Report Type: Spontaneous
  Country: NO (occurrence: NO)
  Receive Date: 20140121
  Receipt Date: 20140121
  Transmission Date: 20141002
  Serious: Yes (Disabling)
  Sender: FDA-Public Use
  Company Number: NO-PFIZER INC-2014018030

PATIENT
  Age: 34 Year
  Sex: Female

DRUGS (1)
  1. SINEQUAN [Suspect]
     Route: 048
     Dates: start: 1987

REACTIONS (10)
  - Weight increased [Recovered/Resolved]
  - Confusional state [Recovered/Resolved]
  - Muscle spasms [Recovered/Resolved]
  - Chills [Recovered/Resolved]
  - Sleep disorder [Recovered/Resolved]
  - Agitation [Recovered/Resolved]
  - Head discomfort [Recovered/Resolved]
  - Paraesthesia [Recovered/Resolved]
  - Panic attack [Recovered/Resolved]
  - Overdose [Recovered/Resolved]
